FAERS Safety Report 6176195-9 (Version None)
Quarter: 2009Q2

REPORT INFORMATION
  Report Type: 
  Country: None (occurrence: None)
  Receive Date: 20090501
  Receipt Date: 20090421
  Transmission Date: 20091009
  Serious: Yes (Death, Hospitalization, Congenital Anomaly)
  Sender: FDA-Public Use
  Company Number: A0652497A

PATIENT
  Sex: Male
  Weight: 3.2 kg

DRUGS (6)
  1. PAXIL [Suspect]
     Indication: DEPRESSION
     Dosage: 20MG PER DAY
     Dates: start: 20011219, end: 20050101
  2. PAXIL CR [Suspect]
     Indication: DEPRESSION
     Dosage: 12.5MG PER DAY
     Dates: start: 20041109, end: 20050101
  3. VITAMIN AND MINERAL PRENATAL SUPPLEMENT W/ FOLIC ACID CAP [Concomitant]
     Dates: start: 20030901, end: 20040601
  4. PROMETHAZINE [Concomitant]
  5. AMOXIL [Concomitant]
  6. PROTONIX [Concomitant]

REACTIONS (24)
  - ATELECTASIS [None]
  - ATRIAL SEPTAL DEFECT [None]
  - ATRIOVENTRICULAR BLOCK [None]
  - BRONCHOSPASM [None]
  - CARDIO-RESPIRATORY ARREST [None]
  - CONGENITAL PULMONARY VALVE DISORDER [None]
  - DACRYOSTENOSIS ACQUIRED [None]
  - DEAFNESS [None]
  - DEVELOPMENTAL DELAY [None]
  - DIGEORGE'S SYNDROME [None]
  - DRUG EXPOSURE DURING PREGNANCY [None]
  - EYE DISCHARGE [None]
  - FALLOT'S TETRALOGY [None]
  - GASTROOESOPHAGEAL REFLUX DISEASE [None]
  - HYPOTONIA [None]
  - MICROCEPHALY [None]
  - OXYGEN SATURATION DECREASED [None]
  - PALLOR [None]
  - PATENT DUCTUS ARTERIOSUS [None]
  - PNEUMONIA [None]
  - PULMONARY ARTERY DILATATION [None]
  - T-LYMPHOCYTE COUNT DECREASED [None]
  - UNDERWEIGHT [None]
  - VELO-CARDIO-FACIAL SYNDROME [None]
